FAERS Safety Report 18193863 (Version 2)
Quarter: 2021Q3

REPORT INFORMATION
  Report Type: Spontaneous
  Country: US (occurrence: US)
  Receive Date: 20200825
  Receipt Date: 20210910
  Transmission Date: 20211014
  Serious: No
  Sender: FDA-Public Use
  Company Number: US-ROCHE-2565089

PATIENT
  Age: 32 Year
  Sex: Female

DRUGS (1)
  1. PEGASYS [Suspect]
     Active Substance: PEGINTERFERON ALFA-2A
     Indication: POLYCYTHAEMIA VERA
     Route: 058

REACTIONS (4)
  - Intentional product use issue [Unknown]
  - Pregnancy [Unknown]
  - Off label use [Unknown]
  - No adverse event [Unknown]
